FAERS Safety Report 11247114 (Version 1)
Quarter: 2015Q3

REPORT INFORMATION
  Report Type: Spontaneous
  Country: US (occurrence: None)
  Receive Date: 20150706
  Receipt Date: 20150706
  Transmission Date: 20151125
  Serious: No
  Sender: FDA-Public Use
  Company Number: None

PATIENT
  Age: 56 Year
  Sex: Female
  Weight: 99.79 kg

DRUGS (8)
  1. NORCO [Concomitant]
     Active Substance: ACETAMINOPHEN\HYDROCODONE BITARTRATE
  2. AVAPRO [Concomitant]
     Active Substance: IRBESARTAN
  3. HYDROCODONE APAP 10/325 MG WATS [Suspect]
     Active Substance: ACETAMINOPHEN\HYDROCODONE BITARTRATE
     Indication: BACK PAIN
     Dosage: TAKEN BY MOUTH
  4. OMNITROPE [Concomitant]
     Active Substance: SOMATROPIN
  5. VITAMIN D [Concomitant]
     Active Substance: CHOLECALCIFEROL
  6. HYDROCODONE APAP 10/325 MG WATS [Suspect]
     Active Substance: ACETAMINOPHEN\HYDROCODONE BITARTRATE
     Indication: KNEE ARTHROPLASTY
     Dosage: TAKEN BY MOUTH
  7. SYNTHROID [Concomitant]
     Active Substance: LEVOTHYROXINE SODIUM
  8. FLEXERIL [Concomitant]
     Active Substance: CYCLOBENZAPRINE HYDROCHLORIDE

REACTIONS (3)
  - Drug ineffective [None]
  - Somnolence [None]
  - Product substitution issue [None]

NARRATIVE: CASE EVENT DATE: 20150701
